FAERS Safety Report 9491428 (Version 2)
Quarter: 2013Q1

REPORT INFORMATION
  Report Type: Not Available
  Country: US (occurrence: US)
  Receive Date: 20120619
  Receipt Date: 20120619
  Transmission Date: 20140127
  Serious: Yes (Hospitalization)
  Sender: FDA-Public Use
  Company Number: US-LUNDBECK-DKLU1074184

PATIENT
  Age: 21 None
  Sex: Male
  Weight: 68 kg

DRUGS (12)
  1. CLOBAZAM [Suspect]
     Indication: LENNOX-GASTAUT SYNDROME
     Route: 048
     Dates: start: 20060504
  2. FELBATOL [Concomitant]
     Indication: EPILEPSY
     Route: 048
     Dates: start: 20081015
  3. LYRICA [Concomitant]
     Indication: EPILEPSY
     Route: 048
     Dates: start: 20070228
  4. CHOLECALCIFEROL [Concomitant]
     Indication: PRODUCT USED FOR UNKNOWN INDICATION
     Route: 048
  5. DIAZEPAM [Concomitant]
     Indication: CONVULSION
  6. DOCUSATE [Concomitant]
     Indication: CONSTIPATION
     Route: 048
  7. FERROUS SULFATE [Concomitant]
     Indication: PRODUCT USED FOR UNKNOWN INDICATION
     Route: 048
  8. GUAIFENESIN-SR [Concomitant]
     Indication: INCREASED BRONCHIAL SECRETION
     Route: 048
  9. MULTIVITAMIN [Concomitant]
     Indication: PRODUCT USED FOR UNKNOWN INDICATION
     Route: 048
  10. POLYETHYLENE GLYCOL [Concomitant]
     Indication: PRODUCT USED FOR UNKNOWN INDICATION
     Route: 048
  11. SENNOSIDES-DOCUSATE [Concomitant]
     Indication: PRODUCT USED FOR UNKNOWN INDICATION
     Route: 048
  12. SODIUM PHOSPHATES [Concomitant]
     Indication: CONSTIPATION
     Route: 050

REACTIONS (1)
  - Convulsion [Recovered/Resolved]
